FAERS Safety Report 9332652 (Version 1)
Quarter: 2013Q2

REPORT INFORMATION
  Report Type: Spontaneous
  Country: GB (occurrence: None)
  Receive Date: 20130603
  Receipt Date: 20130603
  Transmission Date: 20140414
  Serious: Yes (Other)
  Sender: FDA-Public Use
  Company Number: GB-023640

PATIENT
  Age: 5 Year
  Sex: 0

DRUGS (6)
  1. BUSULFAN [Suspect]
     Indication: PRODUCT USED FOR UNKNOWN INDICATION
  2. ALEMTUZUMAB [Suspect]
     Indication: PRODUCT USED FOR UNKNOWN INDICATION
  3. CICLOSPORIN [Suspect]
     Indication: PROPHYLAXIS AGAINST GRAFT VERSUS HOST DISEASE
  4. CYCLOPHOSPHAMIDE [Suspect]
     Indication: PRODUCT USED FOR UNKNOWN INDICATION
  5. ITRACONAZOLE [Suspect]
     Indication: ANTIFUNGAL PROPHYLAXIS
  6. SULFAMETHOXAZOLE AND TRIMETHOPRIM (SULFAMETHOXAZOLE AND TRIMETHOPRIM) (UNKNOWN) [Concomitant]

REACTIONS (6)
  - Acute graft versus host disease in skin [None]
  - Candida pneumonia [None]
  - Engraft failure [None]
  - Drug ineffective [None]
  - Stem cell transplant [None]
  - Surgical procedure repeated [None]
